FAERS Safety Report 21166127 (Version 4)
Quarter: 2022Q3

REPORT INFORMATION
  Report Type: Report from Study
  Country: AU (occurrence: None)
  Receive Date: 20220803
  Receipt Date: 20220927
  Transmission Date: 20221027
  Serious: Yes (Other)
  Sender: FDA-Public Use
  Company Number: AU-ROCHE-3148449

PATIENT
  Age: 64 Year
  Sex: Female
  Weight: 70.5 kg

DRUGS (12)
  1. FARICIMAB [Suspect]
     Active Substance: FARICIMAB
     Indication: Macular oedema
     Dosage: ON 16/FEB/2022 12:49 PM, MOST RECENT DOSE OF MASKED FARICIMAB WAS ADMINISTERED PRIOR TO AE/SAE
     Route: 050
     Dates: start: 20211222
  2. FARICIMAB [Suspect]
     Active Substance: FARICIMAB
     Indication: Macular oedema
     Dosage: ON 16/FEB/2022 12:49 PM, MOST RECENT DOSE OF MASKED FARICIMAB WAS ADMINISTERED PRIOR TO AE/SAE
     Route: 050
     Dates: start: 20211222
  3. PRISTIQ EXTENDED-RELEASE [Concomitant]
     Active Substance: DESVENLAFAXINE SUCCINATE
     Indication: Depression
     Route: 048
     Dates: start: 2015
  4. NEXIUM [Concomitant]
     Active Substance: ESOMEPRAZOLE MAGNESIUM
     Indication: Uveitis
     Route: 048
     Dates: start: 20220413
  5. SIMBRINZA [Concomitant]
     Active Substance: BRIMONIDINE TARTRATE\BRINZOLAMIDE
     Indication: Uveitis
     Route: 047
     Dates: start: 20220706, end: 20220812
  6. SIMBRINZA [Concomitant]
     Active Substance: BRIMONIDINE TARTRATE\BRINZOLAMIDE
     Indication: Uveitis
     Route: 047
     Dates: start: 20220601, end: 20220625
  7. PHENYLEPHRINE HYDROCHLORIDE\PREDNISOLONE ACETATE [Concomitant]
     Active Substance: PHENYLEPHRINE HYDROCHLORIDE\PREDNISOLONE ACETATE
     Indication: Uveitis
     Route: 047
     Dates: start: 20220601, end: 20220629
  8. PHENYLEPHRINE HYDROCHLORIDE\PREDNISOLONE ACETATE [Concomitant]
     Active Substance: PHENYLEPHRINE HYDROCHLORIDE\PREDNISOLONE ACETATE
     Indication: Uveitis
     Route: 047
     Dates: start: 20220719
  9. PANADOL [Concomitant]
     Active Substance: ACETAMINOPHEN
     Indication: Vertigo
     Route: 048
     Dates: start: 20220506
  10. DEXAMETHASONE [Concomitant]
     Active Substance: DEXAMETHASONE
     Indication: Macular oedema
     Route: 050
     Dates: start: 20220608, end: 20220608
  11. ACETAMINOPHEN [Concomitant]
     Active Substance: ACETAMINOPHEN
     Indication: Pneumonia viral
     Route: 048
     Dates: start: 20220908, end: 20220909
  12. AMOXICILLIN\CLAVULANATE POTASSIUM [Concomitant]
     Active Substance: AMOXICILLIN\CLAVULANATE POTASSIUM
     Indication: Pneumonia viral
     Route: 048
     Dates: start: 20220908, end: 20220913

REACTIONS (1)
  - Epiretinal membrane [Not Recovered/Not Resolved]

NARRATIVE: CASE EVENT DATE: 20220706
